FAERS Safety Report 7532235-3 (Version None)
Quarter: 2011Q2

REPORT INFORMATION
  Report Type: 
  Country: None (occurrence: None)
  Receive Date: 20110608
  Receipt Date: 20110602
  Transmission Date: 20111010
  Serious: Yes (Other)
  Sender: FDA-Public Use
  Company Number: PHHY2011GB47705

PATIENT
  Age: 35 Year
  Sex: Male

DRUGS (2)
  1. RANITIDINE [Concomitant]
     Dates: start: 20110523
  2. OMEPRAZOLE [Suspect]
     Dates: start: 20110523

REACTIONS (3)
  - PARANOIA [None]
  - DYSGEUSIA [None]
  - AGITATION [None]
